FAERS Safety Report 9001224 (Version 1)
Quarter: 2013Q1

REPORT INFORMATION
  Report Type: Spontaneous
  Country: CA (occurrence: US)
  Receive Date: 20130107
  Receipt Date: 20130107
  Transmission Date: 20140127
  Serious: Yes (Life-Threatening, Other)
  Sender: FDA-Public Use
  Company Number: CA-JNJFOC-20130100025

PATIENT
  Sex: 0

DRUGS (2)
  1. ACETAMINOPHEN [Suspect]
     Route: 065
  2. ACETAMINOPHEN [Suspect]
     Indication: PRODUCT USED FOR UNKNOWN INDICATION
     Route: 065

REACTIONS (4)
  - Intracranial pressure increased [Unknown]
  - Spinal cord haemorrhage [Unknown]
  - Acute hepatic failure [Unknown]
  - Hepatic encephalopathy [Unknown]
